FAERS Safety Report 9358206 (Version 1)
Quarter: 2013Q2

REPORT INFORMATION
  Report Type: Spontaneous
  Country: US (occurrence: None)
  Receive Date: 20130619
  Receipt Date: 20130619
  Transmission Date: 20140414
  Serious: Yes (Disabling, Other)
  Sender: FDA-Public Use
  Company Number: None

PATIENT
  Age: 38 Year
  Sex: Female
  Weight: 79.38 kg

DRUGS (4)
  1. PAXIL [Suspect]
     Indication: DEPRESSION
     Dates: start: 20060501, end: 20081201
  2. PAXIL [Suspect]
     Indication: ANXIETY
     Dates: start: 20060501, end: 20081201
  3. PAXIL [Suspect]
     Dates: start: 20060501, end: 20081201
  4. ZOLOFT [Suspect]
     Dates: start: 20081201, end: 20121101

REACTIONS (5)
  - Sexual dysfunction [None]
  - Libido decreased [None]
  - Disturbance in sexual arousal [None]
  - Anorgasmia [None]
  - Asthenia [None]
